FAERS Safety Report 8630388 (Version 2)
Quarter: 2013Q3

REPORT INFORMATION
  Report Type: Report from Study
  Country: US (occurrence: US)
  Receive Date: 20120622
  Receipt Date: 20130724
  Transmission Date: 20140515
  Serious: Yes (Hospitalization, Other)
  Sender: FDA-Public Use
  Company Number: US-PFIZER INC-2012147487

PATIENT
  Age: 62 Year
  Sex: Male

DRUGS (16)
  1. NIFEDIPINE [Suspect]
     Dosage: UNK
  2. HYDROCHLOROTHIAZIDE/SPIRONOLACTONE [Suspect]
     Dosage: UNK
  3. ATENOLOL [Suspect]
     Dosage: UNK
     Route: 048
  4. SAXAGLIPTIN [Suspect]
     Indication: TYPE 2 DIABETES MELLITUS
     Dosage: UNK
     Route: 048
     Dates: start: 20101220, end: 20111114
  5. SAXAGLIPTIN [Suspect]
     Dosage: UNK
     Route: 048
     Dates: start: 20111205
  6. INSULIN ASPART [Suspect]
     Indication: TYPE 2 DIABETES MELLITUS
     Dosage: 120 IU, UNK
  7. INSULIN ASPART [Suspect]
     Dosage: 126 IU, UNK
     Dates: start: 20110311, end: 20110603
  8. INSULIN ASPART [Suspect]
     Dosage: 150 IU, UNK
     Dates: start: 20110603
  9. INSULIN GLARGINE [Suspect]
     Indication: TYPE 2 DIABETES MELLITUS
     Dosage: 128 IU, UNK
     Dates: start: 20110811, end: 20111121
  10. INSULIN GLARGINE [Suspect]
     Dosage: 140 IU, UNK
     Dates: start: 20111121, end: 20120516
  11. INSULIN GLARGINE [Suspect]
     Dosage: 128 IU, UNK
     Dates: start: 20120516
  12. LISINOPRIL [Suspect]
     Dosage: UNK
  13. ISOSORBIDE MONONITRATE [Suspect]
     Dosage: UNK
  14. ASA [Suspect]
     Dosage: UNK
  15. FUROSEMIDE [Suspect]
     Dosage: UNK
  16. NIACIN [Concomitant]
     Dosage: UNK
     Route: 065

REACTIONS (2)
  - Renal failure acute [Recovered/Resolved]
  - Hypotension [Recovered/Resolved]
